FAERS Safety Report 11089967 (Version 1)
Quarter: 2015Q2

REPORT INFORMATION
  Report Type: Spontaneous
  Country: US (occurrence: None)
  Receive Date: 20150504
  Receipt Date: 20150504
  Transmission Date: 20150821
  Serious: No
  Sender: FDA-Public Use
  Company Number: None

PATIENT
  Age: 60 Year
  Sex: Male
  Weight: 108 kg

DRUGS (2)
  1. VANCOMYCIN [Suspect]
     Active Substance: VANCOMYCIN
     Indication: BACTERAEMIA
     Route: 042
     Dates: start: 20100717, end: 20100717
  2. VANCOMYCIN [Suspect]
     Active Substance: VANCOMYCIN
     Indication: PNEUMONIA BACTERIAL
     Route: 042
     Dates: start: 20100717, end: 20100717

REACTIONS (5)
  - Dyspnoea [None]
  - Rash [None]
  - Dizziness [None]
  - Flushing [None]
  - Chills [None]

NARRATIVE: CASE EVENT DATE: 20100717
